FAERS Safety Report 5113571-7 (Version None)
Quarter: 2006Q3

REPORT INFORMATION
  Report Type: 
  Country: None (occurrence: None)
  Receive Date: 20060920
  Receipt Date: 20060830
  Transmission Date: 20061208
  Serious: Yes (Other)
  Sender: FDA-Public Use
  Company Number: BR200609000425

PATIENT
  Age: 80 Year
  Sex: Female
  Weight: 79 kg

DRUGS (3)
  1. EVISTA [Suspect]
     Indication: OSTEOPOROSIS
     Dosage: (1/D), ORAL
     Route: 048
     Dates: start: 20020801
  2. GINKGO BILOBA (GINKGO BILOBA) [Concomitant]
  3. ALPRAZOLAM [Concomitant]

REACTIONS (8)
  - ARRHYTHMIA [None]
  - DEPRESSIVE SYMPTOM [None]
  - DRUG INEFFECTIVE [None]
  - HYPERGLYCAEMIA [None]
  - HYPOKINESIA [None]
  - HYPOTHYROIDISM [None]
  - RENAL CYST [None]
  - WEIGHT INCREASED [None]
